FAERS Safety Report 4889650-6 (Version None)
Quarter: 2006Q1

REPORT INFORMATION
  Report Type: 
  Country: None (occurrence: None)
  Receive Date: 20060124
  Receipt Date: 20060119
  Transmission Date: 20060701
  Serious: Yes (Congenital Anomaly)
  Sender: FDA-Public Use
  Company Number: JP-JPN-A200600265

PATIENT
  Age: 1 Month

DRUGS (3)
  1. PAXIL [Suspect]
     Dosage: 20MG PER DAY
     Dates: end: 20050930
  2. PAXIL [Suspect]
     Dosage: 10MG PER DAY
     Dates: start: 20051001, end: 20051112
  3. HORIZON [Concomitant]

REACTIONS (1)
  - VENTRICULAR SEPTAL DEFECT [None]
